FAERS Safety Report 7168064-2 (Version None)
Quarter: 2010Q4

REPORT INFORMATION
  Report Type: 
  Country: None (occurrence: None)
  Receive Date: 20101216
  Receipt Date: 20101206
  Transmission Date: 20110411
  Serious: Yes (Hospitalization)
  Sender: FDA-Public Use
  Company Number: US-CELGENEUS-163-21880-10102179

PATIENT
  Sex: Male

DRUGS (13)
  1. REVLIMID [Suspect]
     Indication: MYELOFIBROSIS
     Route: 048
     Dates: start: 20100728, end: 20100927
  2. PHENERGAN W/ CODEINE [Concomitant]
     Indication: COUGH
     Dosage: 1/2 TEASPOON
     Route: 048
     Dates: start: 20101001
  3. INDOCIN [Concomitant]
     Indication: CHEST PAIN
     Route: 065
     Dates: start: 20101001
  4. ATENOLOL [Concomitant]
     Route: 065
  5. OMEPRAZOLE [Concomitant]
     Route: 065
  6. CLARITIN [Concomitant]
     Route: 065
  7. ZOCOR [Concomitant]
     Route: 065
  8. ASPIRIN [Concomitant]
     Route: 065
  9. TRANXENE [Concomitant]
     Route: 065
  10. TEMAZEPAM [Concomitant]
     Route: 065
  11. WELCHOL [Concomitant]
     Route: 065
  12. SYNTHROID [Concomitant]
     Route: 065
  13. LASIX [Concomitant]
     Route: 065

REACTIONS (2)
  - PERFORATED ULCER [None]
  - PNEUMONIA [None]
